FAERS Safety Report 6496189-3 (Version None)
Quarter: 2009Q4

REPORT INFORMATION
  Report Type: 
  Country: None (occurrence: None)
  Receive Date: 20091214
  Receipt Date: 20091019
  Transmission Date: 20100525
  Serious: No
  Sender: FDA-Public Use
  Company Number: US-BRISTOL-MYERS SQUIBB COMPANY-14821631

PATIENT
  Age: 34 Year
  Sex: Female
  Weight: 59 kg

DRUGS (1)
  1. ABILIFY [Suspect]
     Indication: HUNTINGTON'S CHOREA
     Dosage: THE PATIENT STOPPED ABILIFY 5 YEARS AGO.

REACTIONS (1)
  - DYSKINESIA [None]
